FAERS Safety Report 5520943-5 (Version None)
Quarter: 2007Q4

REPORT INFORMATION
  Report Type: 
  Country: None (occurrence: None)
  Receive Date: 20071119
  Receipt Date: 20071105
  Transmission Date: 20080405
  Serious: Yes (Other)
  Sender: FDA-Public Use
  Company Number: BR-BRISTOL-MYERS SQUIBB COMPANY-13974787

PATIENT
  Age: 27 Year
  Sex: Male

DRUGS (8)
  1. CAPTOPRIL [Suspect]
     Indication: PROTEINURIA
     Dosage: INCREASED TO 100MG/DAY ON 2001,CURRENT-25MG BID 2003
     Dates: start: 20010101
  2. CAPTOPRIL [Suspect]
     Indication: HYPERTENSION
     Dosage: INCREASED TO 100MG/DAY ON 2001,CURRENT-25MG BID 2003
     Dates: start: 20010101
  3. THALIDOMIDE [Suspect]
     Indication: BEHCET'S SYNDROME
     Dates: start: 19980701
  4. METHYLPREDNISOLONE [Concomitant]
     Route: 042
     Dates: start: 20030101
  5. CYCLOPHOSPHAMIDE [Concomitant]
     Route: 042
     Dates: start: 20030101
  6. PREDNISONE TAB [Concomitant]
     Indication: BEHCET'S SYNDROME
     Dosage: ALSO GIVEN 40MG/DAY
     Route: 048
     Dates: start: 19980701
  7. MYCOPHENOLATE MOFETIL [Concomitant]
  8. CEFTRIAXONE [Concomitant]
     Indication: BEHCET'S SYNDROME

REACTIONS (14)
  - ARTHRITIS [None]
  - BIOPSY SITE UNSPECIFIED ABNORMAL [None]
  - CHROMATURIA [None]
  - HYPERTENSION [None]
  - IGA NEPHROPATHY [None]
  - KIDNEY FIBROSIS [None]
  - MOUTH ULCERATION [None]
  - OCULAR HYPERAEMIA [None]
  - PAPILLOEDEMA [None]
  - PSEUDOFOLLICULITIS BARBAE [None]
  - RED BLOOD CELL SEDIMENTATION RATE INCREASED [None]
  - RENAL TUBULAR ATROPHY [None]
  - VASCULITIS [None]
  - VISUAL ACUITY REDUCED [None]
